FAERS Safety Report 8591396-8 (Version None)
Quarter: 2012Q3

REPORT INFORMATION
  Report Type: 
  Country: None (occurrence: None)
  Receive Date: 20120803
  Receipt Date: 20120803
  Transmission Date: 20120928
  Serious: Yes (Other)
  Sender: FDA-Public Use
  Company Number: None

PATIENT
  Sex: Female

DRUGS (5)
  1. LOTHARTAN [Concomitant]
  2. BLOOD SUGAR MEDICATION [Concomitant]
  3. PRILOSEC 20 MG [Suspect]
     Indication: CONSTIPATION
     Dosage: 20 MG ONCE A DAY PO
     Route: 048
     Dates: start: 20120729, end: 20120801
  4. HYDROCHLOROTHYSIDE [Concomitant]
  5. NORVASC [Concomitant]

REACTIONS (1)
  - SOMNOLENCE [None]
